FAERS Safety Report 9830191 (Version 3)
Quarter: 2014Q2

REPORT INFORMATION
  Report Type: Report from Study
  Country: US (occurrence: US)
  Receive Date: 20140120
  Receipt Date: 20140603
  Transmission Date: 20141212
  Serious: Yes (Other)
  Sender: FDA-Public Use
  Company Number: US-ALEXION PHARMACEUTICALS INC.-A201304730

PATIENT
  Sex: 0

DRUGS (8)
  1. SOLIRIS [Suspect]
     Indication: HAEMOLYTIC URAEMIC SYNDROME
     Dosage: 1200 MG, Q2W
     Route: 042
     Dates: start: 20121112
  2. AGGRENOX [Concomitant]
     Indication: ANTICOAGULANT THERAPY
     Dosage: UNK
     Route: 065
     Dates: start: 20121004
  3. FERROUS SULPHATE                   /00023503/ [Concomitant]
     Indication: MINERAL SUPPLEMENTATION
     Dosage: UNK
     Route: 065
     Dates: start: 20121004
  4. FOLIC ACID [Concomitant]
     Indication: PRODUCT USED FOR UNKNOWN INDICATION
     Dosage: UNK
     Route: 065
     Dates: start: 20121004
  5. POTASSIUM [Concomitant]
     Indication: PRODUCT USED FOR UNKNOWN INDICATION
     Dosage: UNK
     Route: 065
     Dates: start: 20121004
  6. CYTOXAN [Concomitant]
     Indication: CHEMOTHERAPY
     Dosage: UNK
     Route: 065
  7. VELCADE [Concomitant]
     Indication: CHEMOTHERAPY
     Dosage: UNK
     Route: 065
  8. DECADRON                           /00016001/ [Concomitant]
     Indication: CHEMOTHERAPY
     Dosage: UNK
     Route: 065

REACTIONS (2)
  - Plasmapheresis [Unknown]
  - Insomnia [Not Recovered/Not Resolved]
